FAERS Safety Report 18218552 (Version 1)
Quarter: 2020Q3

REPORT INFORMATION
  Report Type: Spontaneous
  Country: US (occurrence: US)
  Receive Date: 20200901
  Receipt Date: 20200901
  Transmission Date: 20201103
  Serious: Yes (Hospitalization, Other)
  Sender: FDA-Public Use
  Company Number: US-MYLANLABS-2020M1075540

PATIENT
  Age: 56 Year
  Sex: Male
  Weight: 102 kg

DRUGS (34)
  1. CLOZAPINE. [Suspect]
     Active Substance: CLOZAPINE
     Dosage: 200 MILLIGRAM, QD, ADMINISTERED NIGHTLY; DOSE REDUCED FROM 350 MG TO 200 MG FOLLOWING TRANSFER ..
     Route: 048
  2. HALOPERIDOL. [Suspect]
     Active Substance: HALOPERIDOL
     Indication: ANXIETY
  3. ASPIRIN                            /00002701/ [Concomitant]
     Active Substance: ASPIRIN
     Indication: PRODUCT USED FOR UNKNOWN INDICATION
     Dosage: 81 MILLIGRAM, QD
     Route: 048
  4. GABAPENTIN. [Concomitant]
     Active Substance: GABAPENTIN
     Indication: PRODUCT USED FOR UNKNOWN INDICATION
     Dosage: 400 MILLIGRAM, TID, ADMINISTERED THREE TIMES DAILY
     Route: 048
  5. ONDANSETRON ODT DRLA [Concomitant]
     Active Substance: ONDANSETRON
     Indication: VOMITING
  6. MIRTAZAPINE. [Concomitant]
     Active Substance: MIRTAZAPINE
     Indication: PRODUCT USED FOR UNKNOWN INDICATION
     Dosage: 30 MILLIGRAM, QD, ADMINISTERED NIGHTLY
     Route: 048
  7. ONDANSETRON ODT DRLA [Concomitant]
     Active Substance: ONDANSETRON
     Indication: TARDIVE DYSKINESIA
     Dosage: 8 MILLIGRAM, BID
     Route: 048
  8. LORAZEPAM. [Concomitant]
     Active Substance: LORAZEPAM
     Dosage: 1 MILLIGRAM, QD
     Route: 048
  9. MELATONIN [Concomitant]
     Active Substance: MELATONIN
     Indication: INSOMNIA
     Dosage: 6 MILLIGRAM, PRN, ADMINISTERED NIGHTLY
     Route: 048
  10. HALOPERIDOL. [Suspect]
     Active Substance: HALOPERIDOL
     Indication: AGITATION
  11. TAMSULOSIN [Concomitant]
     Active Substance: TAMSULOSIN
     Indication: PRODUCT USED FOR UNKNOWN INDICATION
     Dosage: 0.8 MILLIGRAM, QD
     Route: 048
  12. VENLAFAXINE XR [Concomitant]
     Active Substance: VENLAFAXINE HYDROCHLORIDE
     Dosage: 75 MILLIGRAM, QD, FORMULATION: EXTENDED?RELEASE
     Route: 048
  13. CLOZAPINE. [Suspect]
     Active Substance: CLOZAPINE
     Dosage: 350 MILLIGRAM, QD, DOSE TITRATED BACK TO 350 MG, FOLLOWING WHICH HE DEVELOPED SOMNOLENCE, LEADING ..
     Route: 048
  14. FENOFIBRATE. [Concomitant]
     Active Substance: FENOFIBRATE
     Indication: PRODUCT USED FOR UNKNOWN INDICATION
     Dosage: 160 MILLIGRAM, QD
     Route: 048
  15. CLOZAPINE. [Suspect]
     Active Substance: CLOZAPINE
     Indication: SCHIZOAFFECTIVE DISORDER
     Dosage: 25 MILLIGRAM, QD, DOSE: 25MG NIGHTLY, FROM 25MG NIGHTLY UP TO 350MG NIGHTLY OVER 3 WEEKS
     Route: 048
  16. ERGOCALCIFEROL. [Concomitant]
     Active Substance: ERGOCALCIFEROL
     Indication: PRODUCT USED FOR UNKNOWN INDICATION
     Dosage: 50000 INTERNATIONAL UNIT, QW
     Route: 048
  17. ONDANSETRON ODT DRLA [Concomitant]
     Active Substance: ONDANSETRON
     Indication: NAUSEA
     Dosage: 4 MILLIGRAM, Q6H, ADMINISTERED EVERY 6 HOURS PRN
     Route: 048
  18. LORAZEPAM. [Concomitant]
     Active Substance: LORAZEPAM
     Dosage: 2 MILLIGRAM, Q6H, AS REQUIRED FOR ANXIETY AND AGITATION
     Route: 048
  19. LISINOPRIL. [Concomitant]
     Active Substance: LISINOPRIL
     Indication: HYPERTENSION
     Dosage: 10 MILLIGRAM, QD
     Route: 048
  20. MIRTAZAPINE. [Concomitant]
     Active Substance: MIRTAZAPINE
     Dosage: 15 MILLIGRAM, QD, ADMINISTERED NIGHTLY
     Route: 048
  21. VENLAFAXINE XR [Concomitant]
     Active Substance: VENLAFAXINE HYDROCHLORIDE
     Dosage: 150 MILLIGRAM, QD, FORMULATION: EXTENDED?RELEASE
     Route: 048
  22. FAMOTIDINE. [Concomitant]
     Active Substance: FAMOTIDINE
     Indication: PRODUCT USED FOR UNKNOWN INDICATION
     Dosage: 20 MILLIGRAM, BID
     Route: 048
  23. FLUTICASONE PROPIONATE. [Concomitant]
     Active Substance: FLUTICASONE PROPIONATE
     Indication: PRODUCT USED FOR UNKNOWN INDICATION
     Dosage: 50 MICROGRAM, QD, ADMINISTERED INTRANASALLY IN EACH NARE DAILY
  24. LAMOTRIGINE. [Concomitant]
     Active Substance: LAMOTRIGINE
     Indication: PRODUCT USED FOR UNKNOWN INDICATION
     Dosage: 100 MILLIGRAM, QD
     Route: 048
  25. LORAZEPAM. [Concomitant]
     Active Substance: LORAZEPAM
     Indication: AGITATION
     Dosage: 1 MILLIGRAM, BID
     Route: 048
  26. MIRTAZAPINE. [Concomitant]
     Active Substance: MIRTAZAPINE
     Dosage: 7.5 MILLIGRAM, QD, ADMINISTERED NIGHTLY
     Route: 048
  27. VENLAFAXINE XR [Concomitant]
     Active Substance: VENLAFAXINE HYDROCHLORIDE
     Dosage: 37.5 MILLIGRAM, QD, FORMULATION: EXTENDED?RELEASE
     Route: 048
  28. CLOZAPINE. [Suspect]
     Active Substance: CLOZAPINE
     Dosage: 350 MILLIGRAM, QD, ADMINISTERED NIGHTLY
     Route: 048
  29. HALOPERIDOL. [Suspect]
     Active Substance: HALOPERIDOL
     Indication: SCHIZOAFFECTIVE DISORDER
     Dosage: 2 MILLIGRAM, QD, ADMINISTERED ON THE FIRST TWO DAYS OF CLOZAPINE THERAPY
     Route: 048
  30. ATORVASTATIN [Concomitant]
     Active Substance: ATORVASTATIN
     Indication: PRODUCT USED FOR UNKNOWN INDICATION
     Dosage: 80 MILLIGRAM, QD, WITH DINNER
     Route: 048
  31. METFORMIN [Concomitant]
     Active Substance: METFORMIN HYDROCHLORIDE
     Indication: TYPE 2 DIABETES MELLITUS
     Dosage: UNK
     Route: 065
  32. LAMOTRIGINE. [Concomitant]
     Active Substance: LAMOTRIGINE
     Dosage: 50 MILLIGRAM, QD
     Route: 048
  33. LORAZEPAM. [Concomitant]
     Active Substance: LORAZEPAM
     Indication: ANXIETY
     Dosage: 2 MILLIGRAM, BID
     Route: 048
  34. VENLAFAXINE XR [Concomitant]
     Active Substance: VENLAFAXINE HYDROCHLORIDE
     Indication: PRODUCT USED FOR UNKNOWN INDICATION
     Dosage: 225 MILLIGRAM, QD, FORMULATION: EXTENDED?RELEASE
     Route: 048

REACTIONS (10)
  - Salivary hypersecretion [Unknown]
  - Pulmonary embolism [Recovering/Resolving]
  - Embolism venous [Recovering/Resolving]
  - Faecaloma [Unknown]
  - Tardive dyskinesia [Unknown]
  - Constipation [Unknown]
  - Enuresis [Unknown]
  - Somnolence [Unknown]
  - Tachycardia [Unknown]
  - Condition aggravated [Unknown]
